FAERS Safety Report 19023114 (Version 1)
Quarter: 2021Q1

REPORT INFORMATION
  Report Type: Spontaneous
  Country: US (occurrence: US)
  Receive Date: 20210318
  Receipt Date: 20210318
  Transmission Date: 20210420
  Serious: No
  Sender: FDA-Public Use
  Company Number: US-ASTRAZENECA-2021A073824

PATIENT
  Sex: Female
  Weight: 68 kg

DRUGS (1)
  1. PULMICORT FLEXHALER [Suspect]
     Active Substance: BUDESONIDE
     Dosage: PULMICORT FLEXHALER 1 INHALATION TWICE DAILY
     Route: 055
     Dates: start: 20210215

REACTIONS (5)
  - Diverticulitis [Not Recovered/Not Resolved]
  - Drug dose omission by device [Unknown]
  - Circumstance or information capable of leading to device use error [Unknown]
  - Drug ineffective [Unknown]
  - Device malfunction [Unknown]
